FAERS Safety Report 6604427-9 (Version None)
Quarter: 2010Q1

REPORT INFORMATION
  Report Type: 
  Country: None (occurrence: None)
  Receive Date: 20100226
  Receipt Date: 20091001
  Transmission Date: 20100710
  Serious: No
  Sender: FDA-Public Use
  Company Number: A0809962A

PATIENT
  Age: 41 Year
  Sex: Female

DRUGS (4)
  1. LAMICTAL CD [Suspect]
     Indication: BIPOLAR DISORDER
     Dosage: 150MG PER DAY
     Route: 048
     Dates: start: 20040101
  2. LAMOTRIGINE [Suspect]
     Indication: BIPOLAR DISORDER
     Dosage: 150MG PER DAY
     Route: 048
     Dates: start: 20081001, end: 20090701
  3. KLONOPIN [Concomitant]
  4. CELEXA [Concomitant]

REACTIONS (3)
  - DRUG INEFFECTIVE [None]
  - FATIGUE [None]
  - FEELING ABNORMAL [None]
